FAERS Safety Report 9412695 (Version 2)
Quarter: 2013Q3

REPORT INFORMATION
  Report Type: Spontaneous
  Country: US (occurrence: None)
  Receive Date: 20130710
  Receipt Date: 20130820
  Transmission Date: 20140515
  Serious: Yes (Other)
  Sender: FDA-Public Use
  Company Number: 54973 AE#1422

PATIENT
  Age: 5 Month
  Sex: Female

DRUGS (1)
  1. HYLAND^S BABY TEETHING TABLETS [Suspect]
     Indication: TEETHING
     Dosage: ONE DAB TO GUMS 2-3XDAY

REACTIONS (2)
  - Convulsion [None]
  - Disturbance in attention [None]
